FAERS Safety Report 7588430-0 (Version None)
Quarter: 2011Q3

REPORT INFORMATION
  Report Type: 
  Country: None (occurrence: None)
  Receive Date: 20110705
  Receipt Date: 20110620
  Transmission Date: 20111222
  Serious: Yes (Other)
  Sender: FDA-Public Use
  Company Number: US-BAYER-201039950NA

PATIENT
  Age: 36 Year
  Sex: Female
  Weight: 59 kg

DRUGS (5)
  1. NEXIUM [Concomitant]
     Indication: GASTROOESOPHAGEAL REFLUX DISEASE
     Dosage: UNK
     Dates: start: 20081119, end: 20090901
  2. OMEPRAZOLE [Concomitant]
     Dosage: 20 MG, UNK
     Dates: start: 20080826
  3. YAZ [Suspect]
     Indication: PRODUCT USED FOR UNKNOWN INDICATION
     Dosage: UNK UNK, UNK
     Route: 048
     Dates: start: 20080415, end: 20090216
  4. YASMIN [Suspect]
     Indication: PRODUCT USED FOR UNKNOWN INDICATION
     Dosage: UNK UNK, UNK
     Route: 048
     Dates: start: 20051010, end: 20051213
  5. CEFUROXIME AXETIL [Concomitant]
     Dosage: 500 MG, UNK
     Dates: start: 20080731

REACTIONS (2)
  - CHOLECYSTITIS CHRONIC [None]
  - PAIN [None]
